FAERS Safety Report 12656325 (Version 2)
Quarter: 2016Q3

REPORT INFORMATION
  Report Type: Spontaneous
  Country: US (occurrence: US)
  Receive Date: 20160816
  Receipt Date: 20160901
  Transmission Date: 20161109
  Serious: Yes (Other)
  Sender: FDA-Public Use
  Company Number: US-RELYPSA-RLY2016001806

PATIENT
  Sex: Male

DRUGS (10)
  1. BISOPROLOL W/HYDROCHLOROTHIAZIDE   /01166101/ [Concomitant]
  2. COLCHICINE. [Concomitant]
     Active Substance: COLCHICINE
  3. PROSCAR [Concomitant]
     Active Substance: FINASTERIDE
  4. ZANTAC [Concomitant]
     Active Substance: RANITIDINE HYDROCHLORIDE
  5. FISH OIL [Concomitant]
     Active Substance: FISH OIL
  6. TRICOR                             /00090101/ [Concomitant]
     Active Substance: ADENOSINE
  7. FELODIPINE. [Concomitant]
     Active Substance: FELODIPINE
  8. ALLOPURINOL. [Concomitant]
     Active Substance: ALLOPURINOL
  9. VELTASSA [Suspect]
     Active Substance: PATIROMER
     Indication: HYPERKALAEMIA
     Dosage: 8.4 G, QD
     Route: 048
  10. CALCITRIOL. [Concomitant]
     Active Substance: CALCITRIOL

REACTIONS (1)
  - Dialysis [Unknown]
